FAERS Safety Report 12888632 (Version 2)
Quarter: 2016Q4

REPORT INFORMATION
  Report Type: Spontaneous
  Country: DE (occurrence: DE)
  Receive Date: 20161027
  Receipt Date: 20161213
  Transmission Date: 20170207
  Serious: Yes (Hospitalization)
  Sender: FDA-Public Use
  Company Number: PHHY2016DE145358

PATIENT
  Age: 69 Year
  Sex: Female
  Weight: 45 kg

DRUGS (7)
  1. PANTOPRAZOLE [Concomitant]
     Active Substance: PANTOPRAZOLE SODIUM
     Indication: PRODUCT USED FOR UNKNOWN INDICATION
     Dosage: 40 MG, QD
     Route: 048
  2. HYCAMTIN [Suspect]
     Active Substance: TOPOTECAN HYDROCHLORIDE
     Indication: METASTASES TO CENTRAL NERVOUS SYSTEM
     Dosage: 1.25 MG/M2, UNK
     Route: 042
     Dates: start: 20160930, end: 20161004
  3. VELIPARIB [Suspect]
     Active Substance: VELIPARIB
     Indication: SMALL CELL LUNG CANCER
     Route: 065
  4. VIGANTOLETTEN [Concomitant]
     Active Substance: CHOLECALCIFEROL
     Indication: PRODUCT USED FOR UNKNOWN INDICATION
     Dosage: 1000 MG, QD
     Route: 065
     Dates: start: 20160607
  5. L-THYROXIN [Concomitant]
     Active Substance: LEVOTHYROXINE SODIUM
     Indication: HYPERTHYROIDISM
     Dosage: 100 UG, QD
     Route: 065
  6. OXAZEPAM. [Concomitant]
     Active Substance: OXAZEPAM
     Indication: INSOMNIA
     Dosage: 10 MG, QD
     Route: 065
     Dates: start: 201603
  7. HYCAMTIN [Suspect]
     Active Substance: TOPOTECAN HYDROCHLORIDE
     Indication: SMALL CELL LUNG CANCER
     Dosage: 1.25 MG/M2, UNK (1 TO 5 OF A 3 WEEK PERIOD)
     Route: 042
     Dates: start: 20160902, end: 20160906

REACTIONS (3)
  - Blood gases abnormal [Unknown]
  - Anaemia [Recovered/Resolved]
  - Circulatory collapse [Unknown]

NARRATIVE: CASE EVENT DATE: 20160907
